FAERS Safety Report 4381283-3 (Version None)
Quarter: 2004Q2

REPORT INFORMATION
  Report Type: 
  Country: None (occurrence: None)
  Receive Date: 20040617
  Receipt Date: 20040617
  Transmission Date: 20050107
  Serious: Yes (Hospitalization)
  Sender: FDA-Public Use
  Company Number: None

PATIENT
  Age: 64 Year
  Sex: Female
  Weight: 63.5036 kg

DRUGS (1)
  1. DEXTROSE 50% [Suspect]
     Indication: HYPOGLYCAEMIA
     Dosage: 50 ML IV PUSH X 2 DOSES
     Route: 042
     Dates: start: 20040429

REACTIONS (3)
  - INFUSION SITE PAIN [None]
  - LOCALISED SKIN REACTION [None]
  - WOUND COMPLICATION [None]
